FAERS Safety Report 6688146-9 (Version None)
Quarter: 2010Q2

REPORT INFORMATION
  Report Type: 
  Country: None (occurrence: None)
  Receive Date: 20100420
  Receipt Date: 20100412
  Transmission Date: 20101027
  Serious: Yes (Other)
  Sender: FDA-Public Use
  Company Number: US-PFIZER INC-2010039905

PATIENT
  Sex: Female
  Weight: 44.444 kg

DRUGS (8)
  1. DETROL LA [Suspect]
     Indication: HYPERTONIC BLADDER
     Dosage: 4 MG, 1X/DAY
     Route: 048
     Dates: start: 20100321
  2. OXYBUTYNIN [Suspect]
     Dosage: UNK
  3. ACTONEL [Concomitant]
     Dosage: 35 MG, WEEKLY
  4. AMBIEN [Concomitant]
     Dosage: UNK
  5. DICLOFENAC [Concomitant]
     Dosage: 20 MG, UNK
  6. CITALOPRAM [Concomitant]
     Dosage: 60 MG, UNK
  7. CLONAZEPAM [Concomitant]
     Dosage: 0.25 MG, 3X/DAY
  8. PROVIGIL [Concomitant]
     Dosage: UNK

REACTIONS (5)
  - BLADDER DISORDER [None]
  - FLATULENCE [None]
  - HEADACHE [None]
  - JOINT SWELLING [None]
  - URINARY INCONTINENCE [None]
